FAERS Safety Report 4336363-5 (Version None)
Quarter: 2004Q2

REPORT INFORMATION
  Report Type: 
  Country: None (occurrence: None)
  Receive Date: 20040407
  Receipt Date: 20040323
  Transmission Date: 20050107
  Serious: Yes (Other)
  Sender: FDA-Public Use
  Company Number: USA040362499

PATIENT
  Age: 69 Year
  Sex: Male
  Weight: 84 kg

DRUGS (5)
  1. HUMALOG [Suspect]
     Indication: DIABETES MELLITUS
     Dates: start: 20020101
  2. HUMULIN R [Suspect]
     Indication: DIABETES MELLITUS
     Dates: start: 19500101, end: 20020101
  3. LANTUS [Concomitant]
  4. LISINOPRIL [Concomitant]
  5. PERSANTINE [Concomitant]

REACTIONS (4)
  - ASTHENIA [None]
  - CEREBROVASCULAR ACCIDENT [None]
  - DIFFICULTY IN WALKING [None]
  - PHARMACEUTICAL PRODUCT COMPLAINT [None]
